FAERS Safety Report 9757282 (Version 1)
Quarter: 2013Q4

REPORT INFORMATION
  Report Type: Report from Study
  Country: US (occurrence: US)
  Receive Date: 20131213
  Receipt Date: 20131213
  Transmission Date: 20140711
  Serious: Yes (Other)
  Sender: FDA-Public Use
  Company Number: US-ABBVIE-13P-163-1176844-00

PATIENT
  Age: 47 Year
  Sex: Female

DRUGS (8)
  1. HUMIRA [Suspect]
     Indication: ANKYLOSING SPONDYLITIS
  2. HUMIRA [Suspect]
  3. METOPROLOL [Concomitant]
     Indication: HYPERTENSION
  4. ZITAPRAM [Concomitant]
     Indication: DEPRESSION
  5. GABAPENTIN [Concomitant]
     Indication: PAIN
  6. TRAMADOL [Concomitant]
     Indication: PAIN
  7. UNKNOWN MEDICATION [Concomitant]
     Indication: COLITIS
  8. UNKNOWN MEDICATION [Concomitant]
     Indication: PROCTITIS

REACTIONS (9)
  - Tendonitis [Not Recovered/Not Resolved]
  - Sneezing [Recovering/Resolving]
  - Cough [Not Recovered/Not Resolved]
  - Drug dose omission [Not Recovered/Not Resolved]
  - Drug dose omission [Not Recovered/Not Resolved]
  - Speech disorder [Unknown]
  - Drug ineffective [Unknown]
  - Back pain [Unknown]
  - Nasopharyngitis [Recovering/Resolving]
